FAERS Safety Report 25370058 (Version 1)
Quarter: 2025Q2

REPORT INFORMATION
  Report Type: Spontaneous
  Country: KR (occurrence: KR)
  Receive Date: 20250528
  Receipt Date: 20250528
  Transmission Date: 20250717
  Serious: Yes (Hospitalization, Other)
  Sender: APELLIS PHARMACEUTICALS
  Company Number: KR-BIOVITRUM-2025-KR-007256

PATIENT

DRUGS (1)
  1. PEGCETACOPLAN [Suspect]
     Active Substance: PEGCETACOPLAN
     Indication: Product used for unknown indication
     Dosage: 20 ML (1080MG SUBCUTANEOUSLY TWICE A?WEEK (DAY 1 AND 4))
     Route: 058

REACTIONS (2)
  - Haematuria [Recovered/Resolved]
  - Haemolysis [Recovered/Resolved]
